FAERS Safety Report 7252095-8 (Version None)
Quarter: 2011Q1

REPORT INFORMATION
  Report Type: 
  Country: None (occurrence: None)
  Receive Date: 20110128
  Receipt Date: 20100430
  Transmission Date: 20110831
  Serious: No
  Sender: FDA-Public Use
  Company Number: US-ABBOTT-10P-163-0641958-00

PATIENT
  Sex: Female
  Weight: 83.536 kg

DRUGS (16)
  1. HUMIRA [Suspect]
     Dates: start: 20100410, end: 20100410
  2. AMLODIPINE [Concomitant]
     Indication: HYPERTENSION
  3. ASPIRIN [Concomitant]
     Indication: CARDIAC DISORDER
  4. DIAZAPAM [Concomitant]
     Indication: ANXIETY
  5. HUMIRA [Suspect]
     Dates: start: 20100424
  6. DISITROPIONATE [Concomitant]
     Indication: RASH
  7. SARNA [Concomitant]
     Indication: PRURITUS
  8. PREVACID [Concomitant]
     Indication: GASTROOESOPHAGEAL REFLUX DISEASE
  9. LEVOXYL [Concomitant]
     Indication: HYPOTHYROIDISM
  10. BETAMTTHOSOONE [Concomitant]
     Indication: RASH
  11. SOMA [Concomitant]
     Indication: ARTHRITIS
  12. SOMA [Concomitant]
     Indication: ROTATOR CUFF SYNDROME
  13. TRAZODONE HCL [Concomitant]
     Indication: INSOMNIA
  14. LISINOPRIL [Concomitant]
     Indication: HYPERTENSION
  15. HUMIRA [Suspect]
     Indication: CROHN'S DISEASE
     Dates: start: 20100403, end: 20100403
  16. CYMBALTA [Concomitant]
     Indication: FIBROMYALGIA

REACTIONS (2)
  - BALANCE DISORDER [None]
  - FATIGUE [None]
